FAERS Safety Report 17856248 (Version 3)
Quarter: 2020Q4

REPORT INFORMATION
  Report Type: Other
  Country: US (occurrence: US)
  Receive Date: 20200603
  Receipt Date: 20201211
  Transmission Date: 20210113
  Serious: Yes (Other)
  Sender: FDA-Public Use
  Company Number: US-ROCHE-2610979

PATIENT
  Sex: Male

DRUGS (1)
  1. OCREVUS [Suspect]
     Active Substance: OCRELIZUMAB
     Indication: RELAPSING MULTIPLE SCLEROSIS
     Dosage: INFUSE 300 MG DAY 1 AND 300 MG DAY 15 AND INFUSE 600 MG AT VERY 6 MONTHS
     Route: 042

REACTIONS (2)
  - Impaired healing [Not Recovered/Not Resolved]
  - Wound infection [Unknown]
